FAERS Safety Report 9912644 (Version 4)
Quarter: 2014Q4

REPORT INFORMATION
  Report Type: Report from Study
  Country: BR (occurrence: BR)
  Receive Date: 20140220
  Receipt Date: 20141105
  Transmission Date: 20150529
  Serious: Yes (Hospitalization)
  Sender: FDA-Public Use
  Company Number: BR-ROCHE-643985

PATIENT
  Age: 48 Year
  Sex: Female
  Weight: 86 kg

DRUGS (9)
  1. GLIFAGE [Concomitant]
     Active Substance: METFORMIN HYDROCHLORIDE
  2. PREXIGE [Concomitant]
     Active Substance: LUMIRACOXIB
     Route: 065
  3. FOLIC ACID. [Concomitant]
     Active Substance: FOLIC ACID
     Route: 065
  4. SYNTHROID [Concomitant]
     Active Substance: LEVOTHYROXINE SODIUM
     Route: 065
  5. OMEPRAZOLE. [Concomitant]
     Active Substance: OMEPRAZOLE
     Route: 065
  6. PURAN [Concomitant]
     Active Substance: LEVOTHYROXINE SODIUM
  7. MODURETIC 5-50 [Concomitant]
     Active Substance: AMILORIDE HYDROCHLORIDE\HYDROCHLOROTHIAZIDE
     Indication: HYPERTENSION
     Route: 065
  8. MABTHERA [Suspect]
     Active Substance: RITUXIMAB
     Route: 042
  9. MABTHERA [Suspect]
     Active Substance: RITUXIMAB
     Indication: RHEUMATOID ARTHRITIS
     Dosage: EACH CYCLE CONSISTS OF 2 DOSES EVERY 15 DAYS WITH 6 MONTHS OF PAUSE. DOSE: 500 MG/50 ML
     Route: 042
     Dates: start: 20080801, end: 20130402

REACTIONS (8)
  - Haemoglobin abnormal [Not Recovered/Not Resolved]
  - Gallbladder disorder [Unknown]
  - Dysphagia [Recovered/Resolved]
  - Labyrinthitis [Not Recovered/Not Resolved]
  - Blood glucose increased [Not Recovered/Not Resolved]
  - Cholecystitis chronic [Unknown]
  - Weight decreased [Unknown]
  - Serum ferritin abnormal [Not Recovered/Not Resolved]

NARRATIVE: CASE EVENT DATE: 20090708
